FAERS Safety Report 20805537 (Version 2)
Quarter: 2022Q2

REPORT INFORMATION
  Report Type: Spontaneous
  Country: None (occurrence: US)
  Receive Date: 20220510
  Receipt Date: 20220606
  Transmission Date: 20220721
  Serious: No
  Sender: FDA-Public Use
  Company Number: US-FDC LIMITED-2128622

PATIENT
  Age: 43 Year
  Sex: Female
  Weight: 68.182 kg

DRUGS (1)
  1. CIPROFLOXACIN [Suspect]
     Active Substance: CIPROFLOXACIN
     Indication: Conjunctivitis
     Route: 047
     Dates: start: 20220425, end: 20220426

REACTIONS (4)
  - Throat irritation [Recovering/Resolving]
  - Chest pain [Recovering/Resolving]
  - Dyspepsia [Recovering/Resolving]
  - Product after taste [Unknown]

NARRATIVE: CASE EVENT DATE: 20220425
